FAERS Safety Report 21151244 (Version 1)
Quarter: 2022Q3

REPORT INFORMATION
  Report Type: Spontaneous
  Country: US (occurrence: US)
  Receive Date: 20220730
  Receipt Date: 20220730
  Transmission Date: 20221026
  Serious: No
  Sender: FDA-Public Use
  Company Number: US-SA-SAC20220719000311

PATIENT
  Age: 62 Year
  Sex: Male

DRUGS (6)
  1. DUPIXENT [Suspect]
     Active Substance: DUPILUMAB
     Indication: Asthma
     Dosage: 300 MG, QOW
     Route: 058
  2. ASPIRIN [Concomitant]
     Active Substance: ASPIRIN
  3. LOSARTAN [Concomitant]
     Active Substance: LOSARTAN
  4. PLAVIX [Concomitant]
     Active Substance: CLOPIDOGREL BISULFATE
  5. VERAPAMIL [Concomitant]
     Active Substance: VERAPAMIL HYDROCHLORIDE
  6. MODERNA COVID-19 VACCINE [Concomitant]
     Active Substance: ELASOMERAN

REACTIONS (8)
  - Dizziness [Unknown]
  - Dyspnoea [Unknown]
  - COVID-19 [Unknown]
  - Cough [Unknown]
  - Pain [Unknown]
  - Productive cough [Unknown]
  - Respiratory disorder [Unknown]
  - Stent placement [Unknown]

NARRATIVE: CASE EVENT DATE: 20220607
